FAERS Safety Report 15727964 (Version 8)
Quarter: 2019Q3

REPORT INFORMATION
  Report Type: Report from Study
  Country: US (occurrence: US)
  Receive Date: 20181217
  Receipt Date: 20190730
  Transmission Date: 20191004
  Serious: Yes (Other)
  Sender: FDA-Public Use
  Company Number: US-CLOVIS ONCOLOGY-CLO-2018-001457

PATIENT
  Age: 68 Year
  Sex: Female

DRUGS (7)
  1. RUBRACA [Suspect]
     Active Substance: RUCAPARIB CAMSYLATE
     Dosage: 300 MG AM/600 MG PM
     Route: 048
     Dates: start: 20190605
  2. RUBRACA [Suspect]
     Active Substance: RUCAPARIB CAMSYLATE
     Dosage: 3 TABLETS A DAY
     Dates: start: 20180925
  3. RUBRACA [Suspect]
     Active Substance: RUCAPARIB CAMSYLATE
     Dosage: 600 MG, BID
     Dates: start: 20180925
  4. RUBRACA [Suspect]
     Active Substance: RUCAPARIB CAMSYLATE
     Dosage: 600 MG, BID
     Route: 048
     Dates: start: 20181003, end: 2018
  5. RUBRACA [Suspect]
     Active Substance: RUCAPARIB CAMSYLATE
     Dosage: 600 MG, BID
     Dates: start: 201903
  6. RUBRACA [Suspect]
     Active Substance: RUCAPARIB CAMSYLATE
     Indication: OVARIAN CANCER
     Dosage: 300 MG, BID
     Route: 048
     Dates: start: 20181003, end: 2018
  7. RUBRACA [Suspect]
     Active Substance: RUCAPARIB CAMSYLATE
     Dosage: 600 MG AM/300 MG PM
     Route: 048
     Dates: start: 20181123, end: 201903

REACTIONS (17)
  - Neuropathy peripheral [Not Recovered/Not Resolved]
  - Nystagmus [Recovering/Resolving]
  - Dizziness [Unknown]
  - Gait disturbance [Unknown]
  - Balance disorder [Recovering/Resolving]
  - Feeling abnormal [Recovering/Resolving]
  - Memory impairment [Recovering/Resolving]
  - Hypothyroidism [Unknown]
  - Nausea [Not Recovered/Not Resolved]
  - Dry skin [Recovered/Resolved]
  - Blood magnesium decreased [Not Recovered/Not Resolved]
  - Thinking abnormal [Unknown]
  - Upper respiratory tract infection [Recovering/Resolving]
  - Blood potassium decreased [Recovered/Resolved]
  - Product dose omission [Unknown]
  - Blood potassium decreased [Unknown]
  - Platelet count decreased [Unknown]

NARRATIVE: CASE EVENT DATE: 2018
